FAERS Safety Report 4937294-X (Version None)
Quarter: 2006Q1

REPORT INFORMATION
  Report Type: 
  Country: None (occurrence: None)
  Receive Date: 20060309
  Receipt Date: 20060224
  Transmission Date: 20060701
  Serious: Yes (Death, Other)
  Sender: FDA-Public Use
  Company Number: PHBS2006DE03439

PATIENT
  Age: 75 Year
  Sex: Female

DRUGS (2)
  1. HYDROCHLOROTHIAZIDE [Suspect]
     Indication: HYPERTENSION
  2. METOPROLOL [Suspect]
     Indication: HYPERTENSION

REACTIONS (4)
  - BREAST CANCER [None]
  - OBSTRUCTIVE AIRWAYS DISORDER [None]
  - SWELLING FACE [None]
  - SWOLLEN TONGUE [None]
